FAERS Safety Report 25496950 (Version 1)
Quarter: 2025Q3

REPORT INFORMATION
  Report Type: Spontaneous
  Country: EU (occurrence: EU)
  Receive Date: 20250701
  Receipt Date: 20250701
  Transmission Date: 20251020
  Serious: Yes (Other)
  Sender: RANBAXY
  Company Number: EU-SUN PHARMACEUTICAL INDUSTRIES LTD-2025RR-514356

PATIENT
  Age: 60 Year
  Sex: Female
  Weight: 94 kg

DRUGS (3)
  1. LANSOPRAZOLE [Suspect]
     Active Substance: LANSOPRAZOLE
     Indication: Product used for unknown indication
     Dosage: 15 MILLIGRAM, DAILY
     Route: 048
     Dates: start: 20241102
  2. JEMPERLI [Suspect]
     Active Substance: DOSTARLIMAB-GXLY
     Indication: Endometrial neoplasm
     Route: 040
     Dates: start: 20241204, end: 202502
  3. CARBOPLATIN [Suspect]
     Active Substance: CARBOPLATIN
     Indication: Endometrial neoplasm
     Route: 040
     Dates: start: 20241204

REACTIONS (1)
  - Colitis [Not Recovered/Not Resolved]

NARRATIVE: CASE EVENT DATE: 20250204
